FAERS Safety Report 4475117-6 (Version None)
Quarter: 2004Q4

REPORT INFORMATION
  Report Type: 
  Country: None (occurrence: None)
  Receive Date: 20041015
  Receipt Date: 20041006
  Transmission Date: 20050328
  Serious: Yes (Other)
  Sender: FDA-Public Use
  Company Number: PHFR2004GB03780

PATIENT
  Sex: Male

DRUGS (1)
  1. AREDIA [Suspect]
     Indication: OSTEOPOROSIS

REACTIONS (3)
  - ALANINE AMINOTRANSFERASE ABNORMAL [None]
  - GAMMA-GLUTAMYLTRANSFERASE ABNORMAL [None]
  - HEPATIC STEATOSIS [None]
